FAERS Safety Report 21590985 (Version 1)
Quarter: 2022Q4

REPORT INFORMATION
  Report Type: Spontaneous
  Country: NO (occurrence: NO)
  Receive Date: 20221114
  Receipt Date: 20221114
  Transmission Date: 20230112
  Serious: Yes (Other)
  Sender: FDA-Public Use
  Company Number: None

PATIENT
  Age: 38 Year
  Sex: Female

DRUGS (3)
  1. HALDOL DECANOATE [Suspect]
     Active Substance: HALOPERIDOL DECANOATE
     Indication: Mania
     Dosage: 08/FEB/2022 I HAD AN INJECTION OF 5 MG + 2 X 1 MG.
     Route: 065
     Dates: start: 20210208, end: 20210210
  2. OXAZEPAM [Concomitant]
     Active Substance: OXAZEPAM
     Indication: Mania
     Dates: start: 20210201, end: 20210215
  3. ZYPREXA [Concomitant]
     Active Substance: OLANZAPINE
     Indication: Mania
     Dosage: 10-20 MG
     Dates: start: 20210206, end: 20210601

REACTIONS (1)
  - Hallucination [Recovered/Resolved]

NARRATIVE: CASE EVENT DATE: 20210208
